FAERS Safety Report 5729672-6 (Version None)
Quarter: 2008Q2

REPORT INFORMATION
  Report Type: 
  Country: None (occurrence: None)
  Receive Date: 20080506
  Receipt Date: 20080501
  Transmission Date: 20081010
  Serious: Yes (Death, Life-Threatening, Hospitalization, Other)
  Sender: FDA-Public Use
  Company Number: IT-BOEHRINGER INGELHEIM GMBH, GERMANY-2008-BP-06934RO

PATIENT
  Age: 20 Day
  Sex: Female

DRUGS (2)
  1. ZIDOVUDINE [Suspect]
     Indication: PROPHYLAXIS
     Route: 048
  2. ANTIBIOTIC THERAPY [Concomitant]
     Indication: ENCEPHALITIS
     Route: 042

REACTIONS (10)
  - ANAEMIA [None]
  - BACTERIAL SEPSIS [None]
  - CEREBRAL PALSY [None]
  - CEREBRAL SALT-WASTING SYNDROME [None]
  - CONVULSION [None]
  - ENCEPHALITIS [None]
  - HYPOTHERMIA [None]
  - NEUTROPENIA [None]
  - OVERDOSE [None]
  - PNEUMONIA [None]
